FAERS Safety Report 24123000 (Version 1)
Quarter: 2024Q3

REPORT INFORMATION
  Report Type: Spontaneous
  Country: IT (occurrence: IT)
  Receive Date: 20240723
  Receipt Date: 20240723
  Transmission Date: 20241017
  Serious: Yes (Other)
  Sender: AUROBINDO
  Company Number: IT-AUROBINDO-AUR-APL-2016-13684

PATIENT
  Age: 75 Day
  Sex: Female

DRUGS (2)
  1. MEROPENEM [Suspect]
     Active Substance: MEROPENEM
     Indication: Osteomyelitis
     Dosage: 100 MILLIGRAM/KILOGRAM, ONCE A DAY (100MG/KG/D IN 3 DIVIDED DOSES)
     Route: 042
     Dates: start: 20151026, end: 20151130
  2. VANCOMYCIN [Concomitant]
     Active Substance: VANCOMYCIN
     Indication: Osteomyelitis
     Dosage: 40 MILLIGRAM/KILOGRAM, ONCE A DAY (40 MG/KG/D IN 3 DIVIDED DOSES)
     Route: 065
     Dates: start: 20151026, end: 20151209

REACTIONS (1)
  - Hypertriglyceridaemia [Recovered/Resolved]
